FAERS Safety Report 8396677 (Version 4)
Quarter: 2013Q4

REPORT INFORMATION
  Report Type: Spontaneous
  Country: JP (occurrence: JP)
  Receive Date: 20120208
  Receipt Date: 20131028
  Transmission Date: 20140711
  Serious: Yes (Life-Threatening, Hospitalization, Other)
  Sender: FDA-Public Use
  Company Number: PHHY2011JP68813

PATIENT
  Age: 26 Year
  Sex: Male

DRUGS (30)
  1. CLOZARIL [Suspect]
     Indication: SCHIZOPHRENIA, DISORGANISED TYPE
     Dosage: 12.5 MG, UNK
     Route: 048
     Dates: end: 20110330
  2. CLOZARIL [Suspect]
     Dosage: 25 MG, UNK
     Route: 048
     Dates: start: 20110331, end: 20110331
  3. CLOZARIL [Suspect]
     Dosage: 50 MG, UNK
     Route: 048
     Dates: start: 20110401, end: 20110403
  4. CLOZARIL [Suspect]
     Dosage: 75 MG, UNK
     Route: 048
     Dates: start: 20110404, end: 20110406
  5. CLOZARIL [Suspect]
     Dosage: 100 MG, UNK
     Route: 048
     Dates: start: 20110407, end: 20110410
  6. CLOZARIL [Suspect]
     Dosage: 125 MG, UNK
     Route: 048
     Dates: start: 20110411, end: 20110413
  7. CLOZARIL [Suspect]
     Dosage: 150 MG, UNK
     Route: 048
     Dates: start: 20110414, end: 20110417
  8. CLOZARIL [Suspect]
     Dosage: 175 MG, UNK
     Route: 048
     Dates: start: 20110418, end: 20110420
  9. CLOZARIL [Suspect]
     Dosage: 200 MG, UNK
     Route: 048
     Dates: start: 20110421, end: 20110518
  10. CLOZARIL [Suspect]
     Dosage: 250 MG, UNK
     Route: 048
     Dates: start: 20110519, end: 20110525
  11. CLOZARIL [Suspect]
     Dosage: 275 MG, UNK
     Route: 048
     Dates: start: 20110526, end: 20110601
  12. CLOZARIL [Suspect]
     Dosage: 300 MG, UNK
     Route: 048
     Dates: start: 20110602, end: 20110622
  13. CLOZARIL [Suspect]
     Dosage: 325 MG, UNK
     Route: 048
     Dates: start: 20110623, end: 20110629
  14. CLOZARIL [Suspect]
     Dosage: 350 MG, UNK
     Route: 048
     Dates: start: 20110630, end: 20110706
  15. CLOZARIL [Suspect]
     Dosage: 375 MG, UNK
     Route: 048
     Dates: start: 20110707, end: 20110720
  16. CLOZARIL [Suspect]
     Dosage: 400 MG, UNK
     Route: 048
     Dates: start: 20110721, end: 20110727
  17. SPIPERONE [Concomitant]
     Dosage: UNK UKN, UNK
     Route: 048
  18. MAGNESIUM OXIDE [Concomitant]
     Dosage: 1000 MG, UNK
     Route: 048
  19. SENNOSIDE [Concomitant]
     Dosage: 24 MG, UNK
     Route: 048
     Dates: start: 20110810
  20. LITHIUM CARBONATE [Concomitant]
     Indication: SCHIZOPHRENIA, DISORGANISED TYPE
     Dosage: 400 MG, UNK
     Route: 048
     Dates: start: 20110503
  21. LITHIUM CARBONATE [Concomitant]
     Dosage: 600 MG, UNK
     Route: 048
  22. LITHIUM CARBONATE [Concomitant]
     Dosage: 800 MG, UNK
     Route: 048
     Dates: end: 20110801
  23. PROMETHAZINE HYDROCHLORIDE [Concomitant]
     Dosage: 25 MG, UNK
     Route: 048
     Dates: start: 20110304, end: 20110519
  24. CLONAZEPAM [Concomitant]
     Indication: SCHIZOPHRENIA, DISORGANISED TYPE
     Dosage: 3 MG, UNK
     Route: 048
     Dates: start: 20110322, end: 20110801
  25. NITRAZEPAM [Concomitant]
     Indication: SCHIZOPHRENIA, DISORGANISED TYPE
     Dosage: 10 MG, UNK
     Route: 048
     Dates: start: 20110322, end: 20110801
  26. LORAZEPAM [Concomitant]
     Indication: SCHIZOPHRENIA, DISORGANISED TYPE
     Dosage: 2 MG, UNK
     Route: 048
     Dates: start: 20110801
  27. PALIPERIDONE [Concomitant]
     Dosage: 6 MG, QD
  28. NEUTROGIN [Concomitant]
     Dosage: UNK UKN, UNK
  29. FILGRASTIM [Concomitant]
     Dosage: UNK UKN, UNK
  30. ITRACONAZOLE [Concomitant]
     Dosage: UNK UKN, UNK

REACTIONS (10)
  - Agranulocytosis [Unknown]
  - Neutropenia [Recovered/Resolved]
  - Leukopenia [Recovered/Resolved]
  - Pyrexia [Recovering/Resolving]
  - Lymphadenopathy [Unknown]
  - Splenomegaly [Unknown]
  - Suicide attempt [Unknown]
  - Granulocytopenia [Unknown]
  - Delusion [Unknown]
  - Hallucination [Unknown]
